FAERS Safety Report 4331646-7 (Version None)
Quarter: 2004Q1

REPORT INFORMATION
  Report Type: 
  Country: None (occurrence: None)
  Receive Date: 20040329
  Receipt Date: 20040315
  Transmission Date: 20041129
  Serious: Yes (Hospitalization)
  Sender: FDA-Public Use
  Company Number: 2004AC00034

PATIENT
  Age: 48 Year
  Sex: Male

DRUGS (2)
  1. METOPROLOL [Suspect]
     Indication: HYPERTENSION
  2. VERAPAMIL [Suspect]
     Indication: HYPERTENSION

REACTIONS (4)
  - ACCIDENTAL OVERDOSE [None]
  - ATRIOVENTRICULAR BLOCK COMPLETE [None]
  - BRADYCARDIA [None]
  - COMA [None]
